FAERS Safety Report 5910615-7 (Version None)
Quarter: 2008Q4

REPORT INFORMATION
  Report Type: 
  Country: None (occurrence: None)
  Receive Date: 20081007
  Receipt Date: 20080929
  Transmission Date: 20090506
  Serious: Yes (Death, Life-Threatening, Hospitalization, Other)
  Sender: FDA-Public Use
  Company Number: IT-NOVOPROD-268725

PATIENT
  Sex: Male
  Weight: 93 kg

DRUGS (12)
  1. NOVOSEVEN [Suspect]
     Indication: TRAUMATIC HAEMORRHAGE
     Dosage: 3 DOSES
     Route: 042
     Dates: start: 20071016, end: 20071016
  2. MIDAZOLAM [Concomitant]
     Indication: SEDATION
     Dosage: 20 A?G/HRS
     Route: 042
     Dates: start: 20071016
  3. FENTANYL [Concomitant]
     Indication: ANALGESIA
     Dosage: 200 A?G/HRS
     Route: 042
     Dates: start: 20071016
  4. MORPHINE [Concomitant]
     Indication: ANALGESIA
     Dosage: 10 MG, UNK
     Route: 042
     Dates: start: 20071029
  5. CLEXANE [Concomitant]
     Indication: ANTICOAGULANT THERAPY
     Dosage: 8000 IU, BID
     Route: 058
     Dates: start: 20071026, end: 20071031
  6. DOBUTAMINE HCL [Concomitant]
     Indication: CARDIOVASCULAR DISORDER
     Dosage: 2.7 UG/KG, UNK
     Route: 042
     Dates: start: 20071028, end: 20071101
  7. DOBUTAMINE HCL [Concomitant]
     Dosage: 5 UG/KG, UNK
     Route: 042
     Dates: start: 20071101, end: 20071101
  8. NORADRENALIN                       /00127501/ [Concomitant]
     Indication: CARDIOVASCULAR DISORDER
     Dosage: .14 UG/KG, UNK
     Route: 042
     Dates: start: 20071031
  9. TARGOCID [Concomitant]
     Indication: ANTIBIOTIC PROPHYLAXIS
     Dosage: 400 MG, BID
     Route: 042
     Dates: start: 20071029
  10. PLASIL                             /00041901/ [Concomitant]
     Indication: GASTRIC DISORDER
     Dosage: 10 MG, TID
     Route: 042
     Dates: start: 20071017
  11. DIAZEPAM [Concomitant]
     Indication: SEDATION
     Dosage: 5 MG, QID
     Route: 048
     Dates: start: 20071031
  12. NOREPINEFRINE [Concomitant]
     Indication: CARDIOVASCULAR DISORDER
     Dosage: .5 UG/KG, UNK
     Route: 042
     Dates: start: 20071101, end: 20071101

REACTIONS (4)
  - CEREBRAL HAEMORRHAGE [None]
  - CIRCULATORY COLLAPSE [None]
  - DEEP VEIN THROMBOSIS [None]
  - MUSCULOSKELETAL DISORDER [None]
